FAERS Safety Report 13352605 (Version 1)
Quarter: 2017Q1

REPORT INFORMATION
  Report Type: Spontaneous
  Country: GB (occurrence: GB)
  Receive Date: 20170320
  Receipt Date: 20170320
  Transmission Date: 20170429
  Serious: Yes (Death, Other)
  Sender: FDA-Public Use
  Company Number: GB-PFIZER INC-2017114802

PATIENT
  Age: 69 Year
  Sex: Female
  Weight: 65 kg

DRUGS (1)
  1. ZOLEDRONIC ACID [Suspect]
     Active Substance: ZOLEDRONIC ACID
     Dosage: 16 MG, UNK

REACTIONS (3)
  - Jaundice [Not Recovered/Not Resolved]
  - Incorrect dose administered [Fatal]
  - Liver injury [Fatal]

NARRATIVE: CASE EVENT DATE: 20161205
